FAERS Safety Report 12187572 (Version 1)
Quarter: 2016Q1

REPORT INFORMATION
  Report Type: Spontaneous
  Country: FR (occurrence: FR)
  Receive Date: 20160317
  Receipt Date: 20160317
  Transmission Date: 20160526
  Serious: Yes (Life-Threatening, Other)
  Sender: FDA-Public Use
  Company Number: FR-ASTRAZENECA-2016SE28647

PATIENT
  Age: 6158 Day
  Sex: Female

DRUGS (10)
  1. OMNIPAQUE [Concomitant]
     Active Substance: IOHEXOL
     Indication: COMPUTERISED TOMOGRAM
     Route: 042
     Dates: start: 20151212, end: 20151212
  2. INEXIUM [Suspect]
     Active Substance: ESOMEPRAZOLE
     Indication: GASTRITIS PROPHYLAXIS
     Route: 048
     Dates: start: 20151025, end: 20151210
  3. PENTASA [Suspect]
     Active Substance: MESALAMINE
     Indication: COLITIS
     Route: 048
     Dates: start: 201511, end: 20151213
  4. LOVENOX [Suspect]
     Active Substance: ENOXAPARIN SODIUM
     Indication: THROMBOSIS
     Route: 058
     Dates: start: 20151025, end: 20151210
  5. RIFADINE [Suspect]
     Active Substance: RIFAMPIN
     Route: 042
     Dates: start: 20151104, end: 20151203
  6. OMNIPAQUE [Concomitant]
     Active Substance: IOHEXOL
     Indication: COMPUTERISED TOMOGRAM
     Route: 042
     Dates: start: 20151209, end: 20151209
  7. SOLIAN [Suspect]
     Active Substance: AMISULPRIDE
     Indication: PSYCHOTIC DISORDER
     Route: 048
     Dates: start: 20151025, end: 20151216
  8. TAVANIC [Suspect]
     Active Substance: LEVOFLOXACIN
     Route: 042
     Dates: start: 20151129, end: 20151210
  9. TAZOCILLINE [Suspect]
     Active Substance: PIPERACILLIN SODIUM\TAZOBACTAM SODIUM
     Indication: THROMBOSIS
     Route: 042
     Dates: start: 20151118, end: 20151210
  10. TAVANIC [Suspect]
     Active Substance: LEVOFLOXACIN
     Route: 042
     Dates: start: 20151025, end: 20151103

REACTIONS (7)
  - Renal failure [Unknown]
  - Drug reaction with eosinophilia and systemic symptoms [Recovered/Resolved]
  - Myocarditis [Unknown]
  - Colitis [Unknown]
  - Thrombosis [Unknown]
  - Sepsis [Unknown]
  - Anaemia [Unknown]

NARRATIVE: CASE EVENT DATE: 20151106
